FAERS Safety Report 6840455-6 (Version None)
Quarter: 2010Q3

REPORT INFORMATION
  Report Type: 
  Country: None (occurrence: None)
  Receive Date: 20100714
  Receipt Date: 20100708
  Transmission Date: 20110219
  Serious: Yes (Hospitalization, Disabling, Congenital Anomaly)
  Sender: FDA-Public Use
  Company Number: FR-JNJFOC-20071206324

PATIENT
  Sex: Female
  Weight: 3 kg

DRUGS (2)
  1. IMODIUM [Suspect]
     Indication: DRUG EXPOSURE DURING PREGNANCY
     Route: 015
  2. NITRIC OXIDE [Suspect]
     Indication: DRUG EXPOSURE DURING PREGNANCY
     Route: 015

REACTIONS (2)
  - CONGENITAL SMALL INTESTINAL ATRESIA [None]
  - DRUG EXPOSURE DURING PREGNANCY [None]
